FAERS Safety Report 5369936-1 (Version None)
Quarter: 2007Q2

REPORT INFORMATION
  Report Type: 
  Country: None (occurrence: None)
  Receive Date: 20070621
  Receipt Date: 20070611
  Transmission Date: 20071010
  Serious: Yes (Other)
  Sender: FDA-Public Use
  Company Number: 16331

PATIENT
  Age: 18 Year
  Sex: Male

DRUGS (3)
  1. BLEOMYCIN [Suspect]
     Indication: TESTIS CANCER
     Dosage: 30 IU PER_CYCLE IV
     Route: 042
  2. CISPLATIN [Suspect]
     Indication: TESTIS CANCER
     Dosage: 20 MG/M2 PER_CYCLE IV
     Route: 042
  3. ETOPOSIDE [Suspect]
     Indication: TESTIS CANCER
     Dosage: 100 MG/M2 PER_CYCLE IV
     Route: 042

REACTIONS (7)
  - DEEP VEIN THROMBOSIS [None]
  - HAEMODIALYSIS [None]
  - HYPERCOAGULATION [None]
  - OEDEMA PERIPHERAL [None]
  - PAIN IN EXTREMITY [None]
  - RENAL FAILURE ACUTE [None]
  - RENAL VEIN THROMBOSIS [None]
